FAERS Safety Report 8042239-2 (Version None)
Quarter: 2012Q1

REPORT INFORMATION
  Report Type: 
  Country: None (occurrence: None)
  Receive Date: 20120112
  Receipt Date: 20120110
  Transmission Date: 20120608
  Serious: Yes (Hospitalization)
  Sender: FDA-Public Use
  Company Number: DE-ROCHE-1027416

PATIENT
  Sex: Male
  Weight: 102 kg

DRUGS (4)
  1. LEVOTHYROXINE SODIUM [Concomitant]
  2. KALIUMIODID [Concomitant]
  3. ASPIRIN [Concomitant]
  4. VEMURAFENIB [Suspect]
     Indication: METASTATIC MALIGNANT MELANOMA
     Route: 048
     Dates: start: 20111228, end: 20111231

REACTIONS (1)
  - PANCREATITIS ACUTE [None]
